FAERS Safety Report 14253545 (Version 1)
Quarter: 2017Q4

REPORT INFORMATION
  Report Type: Spontaneous
  Country: TR (occurrence: TR)
  Receive Date: 20171206
  Receipt Date: 20171206
  Transmission Date: 20180321
  Serious: Yes (Congenital Anomaly, Other)
  Sender: FDA-Public Use
  Company Number: TR-VISTAPHARM, INC.-VER201711-001181

PATIENT

DRUGS (2)
  1. TOPIRAMATE. [Suspect]
     Active Substance: TOPIRAMATE
     Route: 064
  2. VALPROIC ACID. [Suspect]
     Active Substance: VALPROIC ACID
     Route: 064

REACTIONS (2)
  - Congenital teratoma [Unknown]
  - Foetal exposure during pregnancy [Unknown]
